FAERS Safety Report 7266890-2 (Version None)
Quarter: 2011Q1

REPORT INFORMATION
  Report Type: 
  Country: None (occurrence: None)
  Receive Date: 20110201
  Receipt Date: 20110119
  Transmission Date: 20110831
  Serious: Yes (Other)
  Sender: FDA-Public Use
  Company Number: DE-ELI_LILLY_AND_COMPANY-DE201101006283

PATIENT
  Age: 11 Year
  Sex: Male
  Weight: 64 kg

DRUGS (2)
  1. STRATTERA [Suspect]
     Indication: ATTENTION DEFICIT/HYPERACTIVITY DISORDER
     Dosage: 35 MG, UNK
     Route: 048
  2. RITALINA LA [Concomitant]
     Dosage: 20 MG, UNK
     Route: 048

REACTIONS (1)
  - HENOCH-SCHONLEIN PURPURA [None]
